FAERS Safety Report 15433739 (Version 2)
Quarter: 2018Q4

REPORT INFORMATION
  Report Type: Report from Study
  Country: US (occurrence: US)
  Receive Date: 20180927
  Receipt Date: 20181224
  Transmission Date: 20190204
  Serious: Yes (Death, Hospitalization)
  Sender: FDA-Public Use
  Company Number: US-ROCHE-2189098

PATIENT
  Age: 77 Year
  Sex: Male
  Weight: 99.4 kg

DRUGS (2)
  1. PIRFENIDONE. [Suspect]
     Active Substance: PIRFENIDONE
     Indication: IDIOPATHIC PULMONARY FIBROSIS
     Route: 048
     Dates: start: 2014, end: 20180919
  2. BLINDED VALGANCICLOVIR [Suspect]
     Active Substance: VALGANCICLOVIR
     Indication: IDIOPATHIC PULMONARY FIBROSIS
     Route: 048
     Dates: start: 20180526, end: 20180815

REACTIONS (1)
  - Prostate cancer recurrent [Fatal]

NARRATIVE: CASE EVENT DATE: 20180919
